FAERS Safety Report 12726809 (Version 1)
Quarter: 2016Q3

REPORT INFORMATION
  Report Type: Spontaneous
  Country: US (occurrence: US)
  Receive Date: 20160908
  Receipt Date: 20160908
  Transmission Date: 20161109
  Serious: No
  Sender: FDA-Public Use
  Company Number: US-ACTELION-A-US2016-141740

PATIENT
  Age: 81 Year
  Sex: Female

DRUGS (11)
  1. OPSUMIT [Suspect]
     Active Substance: MACITENTAN
     Indication: PULMONARY ARTERIAL HYPERTENSION
     Dosage: 10 MG, QD
     Route: 048
     Dates: start: 20140314
  2. TYVASO [Concomitant]
     Active Substance: TREPROSTINIL
  3. CRESTOR [Concomitant]
     Active Substance: ROSUVASTATIN CALCIUM
  4. ESBRIET [Concomitant]
     Active Substance: PIRFENIDONE
     Dosage: 801 MG, TID
  5. FUROSEMIDE. [Concomitant]
     Active Substance: FUROSEMIDE
  6. DETROL LA [Concomitant]
     Active Substance: TOLTERODINE TARTRATE
  7. BENADRYL [Concomitant]
     Active Substance: DIPHENHYDRAMINE HYDROCHLORIDE
  8. DIOVAN [Concomitant]
     Active Substance: VALSARTAN
  9. HYDROCODONE [Concomitant]
     Active Substance: HYDROCODONE
  10. SPIRONOLACTONE. [Concomitant]
     Active Substance: SPIRONOLACTONE
  11. DIAZEPAM. [Concomitant]
     Active Substance: DIAZEPAM

REACTIONS (1)
  - Nausea [Recovering/Resolving]

NARRATIVE: CASE EVENT DATE: 20160810
